FAERS Safety Report 5179146-9 (Version None)
Quarter: 2006Q4

REPORT INFORMATION
  Report Type: 
  Country: None (occurrence: None)
  Receive Date: 20061204
  Receipt Date: 20061201
  Transmission Date: 20070319
  Serious: Yes (Life-Threatening)
  Sender: FDA-Public Use
  Company Number: 200610846

PATIENT
  Age: 50 Year
  Sex: Male
  Weight: 91.173 kg

DRUGS (5)
  1. IMMUNE GLOBULIN (HUMAN) [Suspect]
     Indication: IMMUNODEFICIENCY COMMON VARIABLE
     Dosage: 3.3 + 5.2 G Q1W SC - SEE IMAGE
     Route: 058
     Dates: start: 20061103
  2. IMMUNE GLOBULIN (HUMAN) [Suspect]
     Indication: IMMUNODEFICIENCY CONGENITAL
     Dosage: 3.3 + 5.2 G Q1W SC - SEE IMAGE
     Route: 058
     Dates: start: 20061103
  3. IMMUNE GLOBULIN (HUMAN) [Suspect]
     Indication: IMMUNODEFICIENCY COMMON VARIABLE
     Dosage: 3.3 + 5.2 G Q1W SC - SEE IMAGE
     Route: 058
     Dates: start: 20061103
  4. IMMUNE GLOBULIN (HUMAN) [Suspect]
     Indication: IMMUNODEFICIENCY CONGENITAL
     Dosage: 3.3 + 5.2 G Q1W SC - SEE IMAGE
     Route: 058
     Dates: start: 20061103
  5. IMMUNE GLOBULIN (HUMAN) [Suspect]

REACTIONS (1)
  - CAPILLARY LEAK SYNDROME [None]
